FAERS Safety Report 6750131-6 (Version None)
Quarter: 2010Q2

REPORT INFORMATION
  Report Type: 
  Country: None (occurrence: None)
  Receive Date: 20100527
  Receipt Date: 20100527
  Transmission Date: 20101027
  Serious: No
  Sender: FDA-Public Use
  Company Number: None

PATIENT
  Age: 42 Year
  Sex: Female
  Weight: 91.7173 kg

DRUGS (1)
  1. VENOFER [Suspect]
     Indication: IRON DEFICIENCY
     Dosage: 500 MG IV
     Route: 042
     Dates: start: 20100526, end: 20100526

REACTIONS (3)
  - INFUSION SITE PAIN [None]
  - RASH [None]
  - URTICARIA [None]
